FAERS Safety Report 23711833 (Version 1)
Quarter: 2024Q2

REPORT INFORMATION
  Report Type: Spontaneous
  Country: US (occurrence: None)
  Receive Date: 20240404
  Receipt Date: 20240404
  Transmission Date: 20240716
  Serious: Yes (Hospitalization)
  Sender: FDA-Public Use
  Company Number: None

PATIENT
  Age: 86 Year
  Sex: Female
  Weight: 56.7 kg

DRUGS (1)
  1. CEFUROXIME AXETIL [Suspect]
     Active Substance: CEFUROXIME AXETIL
     Indication: Urinary tract infection bacterial
     Dosage: OTHER QUANTITY : 1 TABLET(S);?FREQUENCY : TWICE A DAY;?
     Route: 048
     Dates: start: 20140402, end: 20140402

REACTIONS (8)
  - Nausea [None]
  - Vomiting [None]
  - Dyskinesia [None]
  - Tremor [None]
  - Nasopharyngitis [None]
  - Feeling cold [None]
  - Asthenia [None]
  - Decreased activity [None]

NARRATIVE: CASE EVENT DATE: 20240402
